FAERS Safety Report 17243538 (Version 1)
Quarter: 2019Q4

REPORT INFORMATION
  Report Type: Spontaneous
  Country: US (occurrence: US)
  Receive Date: 20191212
  Receipt Date: 20191212
  Transmission Date: 20200122
  Serious: Yes (Hospitalization)
  Sender: FDA-Public Use
  Company Number: None

PATIENT
  Age: 64 Year
  Sex: Female
  Weight: 61.2 kg

DRUGS (1)
  1. ASPIRIN. [Suspect]
     Active Substance: ASPIRIN
     Dates: end: 20191114

REACTIONS (6)
  - Protein urine [None]
  - Urine leukocyte esterase [None]
  - Hypertension [None]
  - Diverticulum [None]
  - Abdominal adhesions [None]
  - White blood cell count increased [None]

NARRATIVE: CASE EVENT DATE: 20191208
